FAERS Safety Report 5320627-2 (Version None)
Quarter: 2007Q2

REPORT INFORMATION
  Report Type: 
  Country: None (occurrence: None)
  Receive Date: 20070509
  Receipt Date: 20070427
  Transmission Date: 20071010
  Serious: Yes (Hospitalization)
  Sender: FDA-Public Use
  Company Number: AU-PFIZER INC-2006144164

PATIENT
  Sex: Male

DRUGS (8)
  1. SU-011,248 [Suspect]
     Indication: PLEURAL MESOTHELIOMA MALIGNANT
     Route: 048
     Dates: start: 20060706, end: 20061024
  2. PANTOPRAZOLE SODIUM [Concomitant]
     Route: 048
  3. ENDEP [Concomitant]
     Route: 048
  4. MICARDIS [Concomitant]
     Route: 048
  5. CELEBREX [Concomitant]
     Route: 048
  6. CODALGIN FORTE [Concomitant]
     Route: 048
  7. GLUCOSAMINE [Concomitant]
     Route: 048
  8. FOLATE [Concomitant]
     Route: 048

REACTIONS (2)
  - CHEST PAIN [None]
  - DYSPNOEA [None]
